FAERS Safety Report 10410995 (Version 1)
Quarter: 2014Q3

REPORT INFORMATION
  Report Type: Spontaneous
  Country: US (occurrence: None)
  Receive Date: 20140822
  Receipt Date: 20140822
  Transmission Date: 20150326
  Serious: Yes (Hospitalization)
  Sender: FDA-Public Use
  Company Number: 2152292

PATIENT
  Age: 47 Year
  Sex: Male

DRUGS (13)
  1. SUCCINYL CHOLINE [Concomitant]
     Active Substance: SUCCINYLCHOLINE
  2. NEOSTIGMINE [Concomitant]
     Active Substance: NEOSTIGMINE
  3. TRAZODONE [Suspect]
     Active Substance: TRAZODONE HYDROCHLORIDE
     Indication: DEPRESSION
  4. PROPOFOL. [Concomitant]
     Active Substance: PROPOFOL
  5. FENTANYL CITRATE. [Suspect]
     Active Substance: FENTANYL CITRATE
     Indication: PAIN
     Route: 042
  6. VECURONIUM [Concomitant]
     Active Substance: VECURONIUM BROMIDE
  7. FENTANYL CITRATE. [Suspect]
     Active Substance: FENTANYL CITRATE
     Indication: GENERAL ANAESTHESIA
     Route: 042
  8. ONDANSETRON [Suspect]
     Active Substance: ONDANSETRON
     Indication: PRODUCT USED FOR UNKNOWN INDICATION
  9. DULOXETINE [Suspect]
     Active Substance: DULOXETINE
     Indication: DEPRESSION
  10. MIDAZOLAM [Concomitant]
     Active Substance: MIDAZOLAM\MIDAZOLAM HYDROCHLORIDE
  11. DESFLURANE [Concomitant]
     Active Substance: DESFLURANE
  12. GLYCOPYRROLATE. [Concomitant]
     Active Substance: GLYCOPYRROLATE
  13. KETAMINE [Concomitant]
     Active Substance: KETAMINE

REACTIONS (8)
  - Serotonin syndrome [None]
  - Pain [None]
  - Blood pressure systolic increased [None]
  - Drug interaction [None]
  - Acidosis [None]
  - Confusional state [None]
  - Agitation [None]
  - Trismus [None]
